FAERS Safety Report 24701675 (Version 2)
Quarter: 2025Q1

REPORT INFORMATION
  Report Type: Spontaneous
  Country: JP (occurrence: JP)
  Receive Date: 20241205
  Receipt Date: 20250103
  Transmission Date: 20250409
  Serious: Yes (Hospitalization, Other)
  Sender: SANOFI AVENTIS
  Company Number: JP-SA-2024SA358943

PATIENT
  Age: 76 Year
  Sex: Male

DRUGS (1)
  1. RENAGEL [Suspect]
     Active Substance: SEVELAMER HYDROCHLORIDE
     Indication: Hyperphosphataemia
     Route: 048

REACTIONS (4)
  - Anastomotic haemorrhage [Unknown]
  - Peritonitis [Unknown]
  - Crystal deposit intestine [Unknown]
  - Small intestinal perforation [Unknown]
